FAERS Safety Report 5467238-6 (Version None)
Quarter: 2007Q3

REPORT INFORMATION
  Report Type: 
  Country: None (occurrence: None)
  Receive Date: 20070925
  Receipt Date: 20070914
  Transmission Date: 20080115
  Serious: Yes (Hospitalization)
  Sender: FDA-Public Use
  Company Number: FR-SANOFI-SYNTHELABO-A01200607897

PATIENT
  Age: 78 Year
  Sex: Male

DRUGS (3)
  1. BICALUTAMIDE [Concomitant]
     Dosage: UNK
     Route: 065
     Dates: start: 20060217, end: 20060305
  2. SOTALOL HYDROCHLORIDE [Concomitant]
     Dosage: UNK
     Route: 065
  3. ELIGARD [Suspect]
     Indication: PROSTATE CANCER
     Route: 058
     Dates: start: 20060225, end: 20060612

REACTIONS (1)
  - TOXIC SKIN ERUPTION [None]
